FAERS Safety Report 16197191 (Version 3)
Quarter: 2019Q2

REPORT INFORMATION
  Report Type: Spontaneous
  Country: US (occurrence: US)
  Receive Date: 20190415
  Receipt Date: 20190529
  Transmission Date: 20190711
  Serious: No
  Sender: FDA-Public Use
  Company Number: US-PFIZER INC-2019157713

PATIENT
  Age: 71 Year
  Sex: Female

DRUGS (1)
  1. REVATIO [Suspect]
     Active Substance: SILDENAFIL CITRATE
     Dosage: UNK

REACTIONS (2)
  - Dysphonia [Unknown]
  - Oropharyngeal pain [Unknown]
